FAERS Safety Report 10162394 (Version 2)
Quarter: 2014Q4

REPORT INFORMATION
  Report Type: Spontaneous
  Country: IT (occurrence: IT)
  Receive Date: 20140509
  Receipt Date: 20141017
  Transmission Date: 20150528
  Serious: Yes (Other)
  Sender: FDA-Public Use
  Company Number: IT-SA-2014SA058062

PATIENT
  Age: 84 Year
  Sex: Female

DRUGS (6)
  1. NEXIUM [Concomitant]
     Active Substance: ESOMEPRAZOLE MAGNESIUM
  2. LASIX [Concomitant]
     Active Substance: FUROSEMIDE
     Dosage: STRENGTH: 20 MG/2 ML; 5 VIALS OF 2 ML
  3. ARIXTRA [Concomitant]
     Active Substance: FONDAPARINUX SODIUM
     Dosage: STRENGTH: 2.5 MG/0.5 ML 2 PRE-FILLED SYRINGES OF 0.5 ML
     Route: 058
  4. RIFAMPICIN [Suspect]
     Active Substance: RIFAMPIN
     Indication: DECUBITUS ULCER
     Route: 042
     Dates: start: 20140326, end: 20140408
  5. SOLUTIONS FOR PARENTERAL NUTRITION [Concomitant]
     Active Substance: AMINO ACIDS\DEXTROSE\ELECTROLYTES NOS
  6. DAKTARIN [Concomitant]
     Active Substance: MICONAZOLE NITRATE
     Dosage: 2% 80G ORAL GEL TUBE
     Route: 048

REACTIONS (1)
  - Anuria [Recovered/Resolved with Sequelae]

NARRATIVE: CASE EVENT DATE: 20140409
